FAERS Safety Report 4883773-3 (Version None)
Quarter: 2006Q1

REPORT INFORMATION
  Report Type: 
  Country: None (occurrence: None)
  Receive Date: 20060113
  Receipt Date: 20060103
  Transmission Date: 20060701
  Serious: Yes (Other)
  Sender: FDA-Public Use
  Company Number: US200512002003

PATIENT
  Sex: Male

DRUGS (4)
  1. ZYPREXA [Suspect]
  2. HALDOL [Concomitant]
  3. COGENTIN      /UNK/ [Concomitant]
  4. BENZTROPINE MESYLATE [Concomitant]

REACTIONS (12)
  - ARTHRALGIA [None]
  - BACK PAIN [None]
  - BLOOD GLUCOSE INCREASED [None]
  - EPILEPSY [None]
  - EYE PAIN [None]
  - MYALGIA [None]
  - PAIN [None]
  - PALPITATIONS [None]
  - PSYCHIATRIC SYMPTOM [None]
  - STRESS [None]
  - TREMOR [None]
  - WEIGHT INCREASED [None]
